FAERS Safety Report 17712862 (Version 3)
Quarter: 2020Q3

REPORT INFORMATION
  Report Type: Report from Study
  Country: US (occurrence: US)
  Receive Date: 20200427
  Receipt Date: 20200824
  Transmission Date: 20201102
  Serious: Yes (Other)
  Sender: FDA-Public Use
  Company Number: US-SA-2019SA282852

PATIENT

DRUGS (8)
  1. CLARITIN?D NOS [Concomitant]
     Active Substance: LORATADINE\PSEUDOEPHEDRINE SULFATE
  2. LEVORA?28 [Concomitant]
  3. DUPILUMAB [Suspect]
     Active Substance: DUPILUMAB
     Dosage: 300 MG, QOW
     Route: 058
     Dates: start: 2020
  4. HYDROXYZINE HCL [Concomitant]
     Active Substance: HYDROXYZINE HYDROCHLORIDE
  5. DUPILUMAB [Suspect]
     Active Substance: DUPILUMAB
     Dosage: 600 MG, 1X
     Route: 058
     Dates: start: 20200201, end: 20200201
  6. TRIAMCINOLONE ACETONIDE. [Concomitant]
     Active Substance: TRIAMCINOLONE ACETONIDE
  7. ZYRETIC [Concomitant]
  8. DUPILUMAB [Suspect]
     Active Substance: DUPILUMAB
     Indication: DERMATITIS ATOPIC
     Dosage: 300 MG, QOW
     Route: 058
     Dates: start: 20191101

REACTIONS (16)
  - Swelling face [Unknown]
  - Periorbital swelling [Unknown]
  - Purulent discharge [Unknown]
  - Erythema [Unknown]
  - Eye pain [Unknown]
  - Lacrimation increased [Unknown]
  - Dry skin [Unknown]
  - Skin exfoliation [Unknown]
  - Rash [Unknown]
  - Eye pruritus [Unknown]
  - Exposure during pregnancy [Unknown]
  - Staphylococcal infection [Unknown]
  - Eye swelling [Unknown]
  - Vision blurred [Unknown]
  - Eczema [Unknown]
  - Erythema [Unknown]

NARRATIVE: CASE EVENT DATE: 2020
